FAERS Safety Report 21445041 (Version 2)
Quarter: 2023Q2

REPORT INFORMATION
  Report Type: Report from Study
  Country: DE (occurrence: DE)
  Receive Date: 20221012
  Receipt Date: 20230627
  Transmission Date: 20230721
  Serious: Yes (Hospitalization)
  Sender: FDA-Public Use
  Company Number: DE-MYLANLABS-2022M1112974

PATIENT
  Sex: Male
  Weight: 115 kg

DRUGS (1)
  1. HULIO [Suspect]
     Active Substance: ADALIMUMAB-FKJP
     Indication: Psoriasis
     Dosage: 40 MILLIGRAM
     Route: 058
     Dates: start: 201901, end: 20211214

REACTIONS (3)
  - Prostatitis [Not Recovered/Not Resolved]
  - Biopsy prostate [Not Recovered/Not Resolved]
  - Antibiotic therapy [Not Recovered/Not Resolved]

NARRATIVE: CASE EVENT DATE: 20220210
